FAERS Safety Report 9012525 (Version 2)
Quarter: 2013Q1

REPORT INFORMATION
  Report Type: Spontaneous
  Country: JP (occurrence: JP)
  Receive Date: 20130114
  Receipt Date: 20130128
  Transmission Date: 20140127
  Serious: Yes (Other)
  Sender: FDA-Public Use
  Company Number: JP-PFIZER INC-2012274236

PATIENT
  Age: 50 Year
  Sex: Female
  Weight: 66 kg

DRUGS (9)
  1. CELECOX [Suspect]
     Indication: HEADACHE
     Dosage: UNK
     Route: 048
     Dates: start: 20120918, end: 20121010
  2. SOLU-MEDROL [Suspect]
     Indication: ORBITAL GRANULOMA
     Dosage: 1000 MG, 1X/DAY
     Route: 042
     Dates: start: 20120910, end: 20120912
  3. GASTER [Concomitant]
     Dosage: UNK
     Route: 048
     Dates: start: 20120919
  4. PREDONINE [Concomitant]
     Dosage: 100 MG, 2X/DAY
     Dates: start: 20120913, end: 20120914
  5. PREDONINE [Concomitant]
     Dosage: 50 MG, UNK
     Dates: start: 20120915, end: 20120916
  6. PREDONINE [Concomitant]
     Dosage: 30 MG, UNK
     Dates: start: 20120917, end: 20120918
  7. PREDONINE [Concomitant]
     Dosage: 10 MG, 1X/DAY
     Route: 048
     Dates: start: 20120919
  8. PRIMPERAN [Concomitant]
     Indication: PROPHYLAXIS
     Dosage: UNK
     Dates: start: 20120910, end: 20120912
  9. FAMOTIDINE [Concomitant]
     Indication: PROPHYLAXIS
     Dosage: UNK

REACTIONS (6)
  - Off label use [Unknown]
  - Palpitations [Recovered/Resolved]
  - Weight decreased [Recovered/Resolved]
  - Irritability [Recovered/Resolved]
  - Hyperhidrosis [Recovered/Resolved]
  - Sympathicotonia [Not Recovered/Not Resolved]
